FAERS Safety Report 25514454 (Version 1)
Quarter: 2025Q3

REPORT INFORMATION
  Report Type: Spontaneous
  Country: US (occurrence: US)
  Receive Date: 20250703
  Receipt Date: 20250703
  Transmission Date: 20251021
  Serious: Yes (Other)
  Sender: PFIZER
  Company Number: US-PFIZER INC-202500129136

PATIENT
  Age: 66 Year
  Sex: Male

DRUGS (2)
  1. LORBRENA [Suspect]
     Active Substance: LORLATINIB
     Indication: Brain neoplasm
  2. LORBRENA [Suspect]
     Active Substance: LORLATINIB
     Indication: Non-small cell lung cancer

REACTIONS (5)
  - Metastases to central nervous system [Unknown]
  - Oesophageal obstruction [Unknown]
  - Oesophageal mass [Unknown]
  - Wrong technique in product usage process [Unknown]
  - Off label use [Unknown]
